FAERS Safety Report 7224291-7 (Version None)
Quarter: 2011Q1

REPORT INFORMATION
  Report Type: 
  Country: None (occurrence: None)
  Receive Date: 20110106
  Receipt Date: 20110106
  Transmission Date: 20110831
  Serious: Yes (Hospitalization)
  Sender: FDA-Public Use
  Company Number: None

PATIENT
  Age: 71 Year
  Sex: Female
  Weight: 100 kg

DRUGS (26)
  1. ASPIRIN [Concomitant]
  2. FLOMAX [Concomitant]
  3. NEURONTIN [Suspect]
  4. CLONAZEPAM [Suspect]
  5. ABILIFY [Suspect]
  6. NORCO [Concomitant]
  7. LIPITOR [Concomitant]
  8. VIT D [Concomitant]
  9. TYLENOL-500 [Concomitant]
  10. ENALAPRIL MALEATE [Concomitant]
  11. TRAZADONE [Suspect]
  12. DEPAKOTE [Suspect]
  13. FOLIC ACID [Concomitant]
  14. SENOCRIT [Concomitant]
  15. GABAPENTIN [Suspect]
  16. VIT C [Concomitant]
  17. GLYCOL [Concomitant]
  18. METAMUCIL-2 [Concomitant]
  19. SEROQUEL [Suspect]
  20. AGGRENOX [Concomitant]
  21. QUETIAPINE [Concomitant]
  22. METHADONE [Suspect]
  23. RESTASIS [Concomitant]
  24. M.V.I. [Concomitant]
  25. NITROGLYCERIN [Concomitant]
  26. FISH OIL [Concomitant]

REACTIONS (3)
  - FALL [None]
  - UNEVALUABLE EVENT [None]
  - COORDINATION ABNORMAL [None]
